FAERS Safety Report 4482052-6 (Version None)
Quarter: 2004Q3

REPORT INFORMATION
  Report Type: 
  Country: None (occurrence: None)
  Receive Date: 20040921
  Receipt Date: 20030724
  Transmission Date: 20050211
  Serious: Yes (Death)
  Sender: FDA-Public Use
  Company Number: 2001-07-0135

PATIENT
  Age: 70 Year
  Sex: Female

DRUGS (5)
  1. THALOMID [Suspect]
     Indication: MULTIPLE MYELOMA
     Dosage: ORAL
     Route: 048
     Dates: start: 20010418, end: 20010703
  2. DEXAMETHASONE [Suspect]
     Dosage: ORAL
     Route: 048
  3. CELEBREX [Concomitant]
  4. NEURONTIN [Concomitant]
  5. MORPHINE SULFATE [Concomitant]

REACTIONS (1)
  - DEATH [None]
